FAERS Safety Report 7712404-X (Version None)
Quarter: 2011Q3

REPORT INFORMATION
  Report Type: 
  Country: None (occurrence: None)
  Receive Date: 20110823
  Receipt Date: 20110812
  Transmission Date: 20111222
  Serious: Yes (Other)
  Sender: FDA-Public Use
  Company Number: TPA2011A04900

PATIENT
  Age: 75 Year
  Sex: Male
  Weight: 108.8633 kg

DRUGS (4)
  1. DIOVAN (VALSARTAN0 [Concomitant]
  2. ASPIRIN [Concomitant]
  3. METFORMIN HCL [Concomitant]
  4. ACTOS [Suspect]
     Indication: TYPE 2 DIABETES MELLITUS
     Dosage: PER ORAL
     Route: 048

REACTIONS (5)
  - CATARACT [None]
  - DRUG INEFFECTIVE [None]
  - BLINDNESS UNILATERAL [None]
  - INTRAOCULAR PRESSURE INCREASED [None]
  - VISUAL ACUITY REDUCED [None]
